FAERS Safety Report 5802811-4 (Version None)
Quarter: 2008Q3

REPORT INFORMATION
  Report Type: 
  Country: None (occurrence: None)
  Receive Date: 20080708
  Receipt Date: 20080627
  Transmission Date: 20090109
  Serious: Yes (Hospitalization)
  Sender: FDA-Public Use
  Company Number: GB-AMGEN-US291136

PATIENT
  Sex: Male
  Weight: 91 kg

DRUGS (11)
  1. ENBREL [Suspect]
     Indication: RHEUMATOID ARTHRITIS
     Route: 058
     Dates: start: 20070522
  2. CELECOXIB [Concomitant]
     Dosage: UNKNOWN
  3. CITALOPRAM HYDROBROMIDE [Concomitant]
     Dosage: UNKNOWN
  4. FLOMAX [Concomitant]
     Dosage: UNKNOWN
  5. TRAMADOL HCL [Concomitant]
     Dosage: UNKNOWN
  6. IMDUR [Concomitant]
     Dosage: UNKNOWN
  7. LACTULOSE [Concomitant]
     Dosage: UNKNOWN
  8. OMEPRAZOLE [Concomitant]
     Dosage: UNKNOWN
  9. ACETAMINOPHEN [Concomitant]
     Dosage: UNKNOWN
  10. ASPIRIN [Concomitant]
     Dosage: UNKNOWN
  11. FRUMIL [Concomitant]
     Dosage: UNKNOWN

REACTIONS (1)
  - KERATITIS [None]
